FAERS Safety Report 8881940 (Version 1)
Quarter: 2012Q4

REPORT INFORMATION
  Report Type: 
  Country: IN (occurrence: IN)
  Receive Date: 20121105
  Receipt Date: 20121105
  Transmission Date: 20130627
  Serious: Yes (Death, Hospitalization)
  Sender: FDA-Public Use
  Company Number: IN-009507513-1210IND013782

PATIENT
  Sex: Male

DRUGS (2)
  1. VIRAFERONPEG [Suspect]
     Dosage: 80 Microgram,weekly once
  2. REBETOL [Suspect]

REACTIONS (6)
  - Multi-organ failure [Fatal]
  - Blood count abnormal [Unknown]
  - Lateral medullary syndrome [Unknown]
  - Vomiting [Unknown]
  - Oedema peripheral [Unknown]
  - Asthenia [Unknown]
